FAERS Safety Report 6615408-3 (Version None)
Quarter: 2010Q1

REPORT INFORMATION
  Report Type: 
  Country: None (occurrence: None)
  Receive Date: 20100305
  Receipt Date: 20091105
  Transmission Date: 20100710
  Serious: No
  Sender: FDA-Public Use
  Company Number: A0816306A

PATIENT
  Sex: Female
  Weight: 94.1 kg

DRUGS (13)
  1. REQUIP [Suspect]
     Indication: RESTLESS LEGS SYNDROME
     Dosage: 2MG AT NIGHT
     Route: 048
  2. ROPINIROLE HYDROCHLORIDE [Suspect]
     Indication: RESTLESS LEGS SYNDROME
     Route: 048
     Dates: start: 20080101
  3. PREMARIN [Concomitant]
  4. ZIAC [Concomitant]
  5. LOTREL [Concomitant]
  6. POTASSIUM CHLORIDE [Concomitant]
  7. METFORMIN HYDROCHLORIDE [Concomitant]
  8. NEXIUM [Concomitant]
  9. TRICOR [Concomitant]
  10. JANUVIA [Concomitant]
  11. LOVAZA [Concomitant]
  12. LEVEMIR [Concomitant]
  13. NOVOLOG [Concomitant]

REACTIONS (1)
  - ADVERSE EVENT [None]
